FAERS Safety Report 6564500-0 (Version None)
Quarter: 2010Q1

REPORT INFORMATION
  Report Type: 
  Country: None (occurrence: None)
  Receive Date: 20100201
  Receipt Date: 20100125
  Transmission Date: 20100710
  Serious: Yes (Death)
  Sender: FDA-Public Use
  Company Number: DE-ELI_LILLY_AND_COMPANY-DE200912001194

PATIENT
  Sex: Male
  Weight: 87 kg

DRUGS (5)
  1. DULOXETINE HYDROCHLORIDE [Suspect]
     Indication: DIABETIC NEUROPATHY
     Dosage: 60 MG, DAILY (1/D)
     Route: 048
     Dates: start: 20090330
  2. PALLADONE [Concomitant]
     Indication: PAIN
     Dosage: 24 MG, UNK
     Route: 048
     Dates: start: 20071215
  3. METOPROLOL SUCCINATE [Concomitant]
     Indication: HYPERTENSION
     Dosage: 47.5 MG, UNK
     Route: 048
     Dates: start: 20051216
  4. GABAPENTIN [Concomitant]
     Indication: PAIN
     Dosage: 900, UNK
     Route: 048
     Dates: start: 20071201
  5. AMITRIPTYLINE HYDROCHLORIDE [Concomitant]
     Dosage: 50 MG, UNK
     Route: 048
     Dates: start: 20071208

REACTIONS (1)
  - ROAD TRAFFIC ACCIDENT [None]
